FAERS Safety Report 9177612 (Version 2)
Quarter: 2013Q2

REPORT INFORMATION
  Report Type: Spontaneous
  Country: US (occurrence: US)
  Receive Date: 20130321
  Receipt Date: 20130514
  Transmission Date: 20140414
  Serious: Yes (Other)
  Sender: FDA-Public Use
  Company Number: US-BAYER-2013-033810

PATIENT
  Age: 38 Year
  Sex: Female
  Weight: 71.2 kg

DRUGS (2)
  1. MIRENA [Suspect]
     Dosage: 20 MCG/24HR, CONT
     Route: 015
     Dates: start: 20070205, end: 20070501
  2. MIRENA [Suspect]
     Dosage: 20 MCG/24HR, CONT
     Route: 015
     Dates: start: 20120717, end: 20120718

REACTIONS (6)
  - Device issue [None]
  - Post procedural haemorrhage [Recovered/Resolved]
  - Abdominal pain lower [None]
  - Device issue [None]
  - Dizziness [None]
  - Nausea [None]
